FAERS Safety Report 20374434 (Version 3)
Quarter: 2023Q2

REPORT INFORMATION
  Report Type: Spontaneous
  Country: CA (occurrence: CA)
  Receive Date: 20220125
  Receipt Date: 20230421
  Transmission Date: 20230721
  Serious: Yes (Other)
  Sender: FDA-Public Use
  Company Number: CA-PFIZER INC-202200072135

PATIENT
  Age: 31 Year
  Sex: Female

DRUGS (1)
  1. SULFASALAZINE [Suspect]
     Active Substance: SULFASALAZINE
     Indication: Crohn^s disease
     Dosage: UNK
     Dates: start: 201007

REACTIONS (4)
  - Ankylosing spondylitis [Recovered/Resolved]
  - Large intestinal ulcer [Unknown]
  - Anaemia [Unknown]
  - Colitis [Unknown]

NARRATIVE: CASE EVENT DATE: 20100101
